FAERS Safety Report 6878132-8 (Version None)
Quarter: 2010Q2

REPORT INFORMATION
  Report Type: 
  Country: None (occurrence: None)
  Receive Date: 20100616
  Receipt Date: 20100310
  Transmission Date: 20101027
  Serious: No
  Sender: FDA-Public Use
  Company Number: DSA_42761_2010

PATIENT
  Sex: Female

DRUGS (2)
  1. XENAZINE [Suspect]
     Indication: HUNTINGTON'S CHOREA
     Dosage: 12.5 MG BID ORAL
     Route: 048
     Dates: start: 20091201
  2. PAXIL [Concomitant]

REACTIONS (4)
  - AGITATION [None]
  - DEPRESSION [None]
  - MOVEMENT DISORDER [None]
  - SOMNOLENCE [None]
